FAERS Safety Report 5256471-4 (Version None)
Quarter: 2007Q1

REPORT INFORMATION
  Report Type: 
  Country: None (occurrence: None)
  Receive Date: 20070306
  Receipt Date: 20070302
  Transmission Date: 20070707
  Serious: Yes (Other)
  Sender: FDA-Public Use
  Company Number: US-GLAXOSMITHKLINE-A0641596A

PATIENT
  Age: 45 Year
  Sex: Male

DRUGS (2)
  1. WELLBUTRIN XL [Suspect]
     Indication: ANXIETY
     Dosage: 150MG PER DAY
     Route: 048
     Dates: start: 20060701, end: 20060801
  2. NO CONCURRENT MEDICATION [Concomitant]

REACTIONS (3)
  - TINNITUS [None]
  - URINARY INCONTINENCE [None]
  - URINARY RETENTION [None]
